FAERS Safety Report 13608039 (Version 1)
Quarter: 2017Q2

REPORT INFORMATION
  Report Type: Spontaneous
  Country: IT (occurrence: IT)
  Receive Date: 20170602
  Receipt Date: 20170602
  Transmission Date: 20170830
  Serious: Yes (Death, Hospitalization, Other)
  Sender: FDA-Public Use
  Company Number: IT-MYLANLABS-2016M1057677

PATIENT

DRUGS (2)
  1. AMIODARONE [Suspect]
     Active Substance: AMIODARONE
     Indication: VENTRICULAR ARRHYTHMIA
     Dosage: 200 MG, QD
     Route: 048
  2. AMIODARONE MYLAN [Suspect]
     Active Substance: AMIODARONE
     Indication: VENTRICULAR ARRHYTHMIA
     Dosage: 400 MG, QD
     Route: 048

REACTIONS (6)
  - Asthenia [Fatal]
  - Thyroid function test abnormal [Fatal]
  - Respiratory distress [Fatal]
  - Pulmonary toxicity [Fatal]
  - Weight decreased [Fatal]
  - Interstitial lung disease [Fatal]
